FAERS Safety Report 22350451 (Version 8)
Quarter: 2024Q2

REPORT INFORMATION
  Report Type: Report from Study
  Country: JP (occurrence: JP)
  Receive Date: 20230522
  Receipt Date: 20240405
  Transmission Date: 20240715
  Serious: Yes (Death, Hospitalization, Other)
  Sender: FDA-Public Use
  Company Number: JP-ONO-2023JP012755

PATIENT
  Age: 76 Year
  Sex: Female
  Weight: 54.4 kg

DRUGS (11)
  1. OPDIVO [Suspect]
     Active Substance: NIVOLUMAB
     Indication: Gastric cancer
     Dosage: 360 MG
     Route: 041
     Dates: start: 20220617, end: 20230127
  2. OPDIVO [Suspect]
     Active Substance: NIVOLUMAB
  3. TS-1 [Suspect]
     Active Substance: GIMERACIL\OTERACIL POTASSIUM\TEGAFUR
     Indication: Gastric cancer
     Dosage: 80 MG/M2
     Route: 048
     Dates: start: 20220617, end: 20230127
  4. TS-1 [Suspect]
     Active Substance: GIMERACIL\OTERACIL POTASSIUM\TEGAFUR
     Dosage: 2 TABLETS X TWICE
     Route: 048
     Dates: end: 20230210
  5. OXALIPLATIN [Suspect]
     Active Substance: OXALIPLATIN
     Indication: Gastric cancer
     Route: 041
     Dates: start: 20220617, end: 20230127
  6. VONOPRAZAN FUMARATE [Concomitant]
     Active Substance: VONOPRAZAN FUMARATE
     Indication: Product used for unknown indication
     Route: 048
     Dates: start: 202206
  7. HEPARINOID [Concomitant]
     Indication: Product used for unknown indication
     Route: 061
     Dates: start: 202206
  8. DIFLUPREDNATE [Concomitant]
     Active Substance: DIFLUPREDNATE
     Indication: Product used for unknown indication
     Route: 061
     Dates: start: 202206
  9. SODIUM GUALENATE MONOHYDRATE [Concomitant]
     Active Substance: SODIUM GUALENATE MONOHYDRATE
     Indication: Product used for unknown indication
     Route: 049
     Dates: start: 202206
  10. DEXAMETHASONE [Concomitant]
     Active Substance: DEXAMETHASONE
     Indication: Product used for unknown indication
     Route: 061
     Dates: start: 202206
  11. GUAIAZULENE [Concomitant]
     Active Substance: GUAIAZULENE
     Indication: Product used for unknown indication
     Route: 061
     Dates: start: 202206

REACTIONS (11)
  - Hepatic failure [Fatal]
  - Movement disorder [Unknown]
  - Decreased appetite [Unknown]
  - Hyponatraemia [Unknown]
  - Pneumonia bacterial [Not Recovered/Not Resolved]
  - Hypopituitarism [Not Recovered/Not Resolved]
  - Immune-mediated lung disease [Not Recovered/Not Resolved]
  - Blood corticotrophin decreased [Unknown]
  - Dyspnoea [Not Recovered/Not Resolved]
  - Oxygen saturation decreased [Not Recovered/Not Resolved]
  - Infection [Unknown]

NARRATIVE: CASE EVENT DATE: 20230217
